FAERS Safety Report 6756534-8 (Version None)
Quarter: 2010Q2

REPORT INFORMATION
  Report Type: 
  Country: None (occurrence: None)
  Receive Date: 20100604
  Receipt Date: 20100527
  Transmission Date: 20101027
  Serious: Yes (Hospitalization)
  Sender: FDA-Public Use
  Company Number: B0658985A

PATIENT
  Sex: Female

DRUGS (1)
  1. AUGMENTIN '125' [Suspect]
     Indication: INFLUENZA LIKE ILLNESS
     Route: 065
     Dates: start: 20100414, end: 20100416

REACTIONS (2)
  - HYPOTONIA [None]
  - SOMNOLENCE [None]
